FAERS Safety Report 4357157-0 (Version None)
Quarter: 2004Q2

REPORT INFORMATION
  Report Type: 
  Country: None (occurrence: None)
  Receive Date: 20040507
  Receipt Date: 20040427
  Transmission Date: 20050107
  Serious: Yes (Hospitalization)
  Sender: FDA-Public Use
  Company Number: 2004-04-1611

PATIENT
  Age: 49 Year
  Sex: Female

DRUGS (2)
  1. TEMODAR [Suspect]
     Indication: METASTASIS
     Dosage: ORAL  (1 DOSE(S) )
  2. TEMODAR [Suspect]
     Indication: NEUROENDOCRINE CARCINOMA
     Dosage: ORAL  (1 DOSE(S) )

REACTIONS (2)
  - ACUTE RESPIRATORY DISTRESS SYNDROME [None]
  - LUNG INFILTRATION [None]
